FAERS Safety Report 7425927-8 (Version None)
Quarter: 2011Q2

REPORT INFORMATION
  Report Type: 
  Country: None (occurrence: None)
  Receive Date: 20110420
  Receipt Date: 20091122
  Transmission Date: 20111010
  Serious: Yes (Death, Other)
  Sender: FDA-Public Use
  Company Number: US-BAYER-201039416NA

PATIENT
  Age: 48 Year
  Sex: Male
  Weight: 104 kg

DRUGS (12)
  1. IBUPROFEN [Concomitant]
     Dosage: PRN
     Route: 048
  2. ACETYLSALICYLIC ACID SRT [Concomitant]
     Dosage: PRN
     Route: 048
  3. VANCOMYCIN [Concomitant]
     Dosage: UNK
     Dates: start: 20040520, end: 20040525
  4. TYLENOL REGULAR [Concomitant]
     Dosage: PRN
     Route: 048
  5. ALEVE (CAPLET) [Concomitant]
     Dosage: PRN
     Route: 048
  6. TRASYLOL [Suspect]
     Indication: CORONARY ARTERY BYPASS
     Route: 042
     Dates: start: 20050825
  7. VANCOMYCIN [Concomitant]
     Dosage: UNK
     Dates: start: 20041013, end: 20041028
  8. VANCOMYCIN [Concomitant]
     Dosage: UNK
     Dates: start: 20040415, end: 20040428
  9. VANCOMYCIN [Concomitant]
     Dosage: UNK
     Dates: start: 20041122
  10. VANCOMYCIN [Concomitant]
     Dosage: UNK
     Dates: start: 20041005, end: 20041013
  11. GENTAMICIN [Concomitant]
     Dosage: UNK
     Dates: start: 20041005, end: 20041013
  12. GENTAMICIN [Concomitant]
     Dosage: UNK
     Dates: start: 20041013, end: 20041028

REACTIONS (12)
  - ANXIETY [None]
  - PAIN [None]
  - UNEVALUABLE EVENT [None]
  - DEATH [None]
  - RENAL FAILURE [None]
  - INJURY [None]
  - FEAR [None]
  - RENAL INJURY [None]
  - RENAL IMPAIRMENT [None]
  - MULTI-ORGAN FAILURE [None]
  - EMOTIONAL DISTRESS [None]
  - STRESS [None]
